FAERS Safety Report 19509955 (Version 2)
Quarter: 2022Q2

REPORT INFORMATION
  Report Type: Spontaneous
  Country: CN (occurrence: CN)
  Receive Date: 20210709
  Receipt Date: 20220622
  Transmission Date: 20220720
  Serious: Yes (Death, Life-Threatening, Hospitalization, Other)
  Sender: FDA-Public Use
  Company Number: CN-LUPIN PHARMACEUTICALS INC.-2021-11293

PATIENT
  Age: 42 Year
  Sex: Male

DRUGS (6)
  1. VANCOMYCIN [Suspect]
     Active Substance: VANCOMYCIN
     Indication: Anti-infective therapy
     Dosage: 1000 MILLIGRAM, BID
     Route: 065
  2. LINEZOLID [Suspect]
     Active Substance: LINEZOLID
     Indication: Anti-infective therapy
     Dosage: 600 MILLIGRAM, BID
     Route: 065
  3. BIAPENEM [Interacting]
     Active Substance: BIAPENEM
     Indication: Anti-infective therapy
     Dosage: 0.6 GRAM, BID
     Route: 065
  4. VALPROATE SODIUM [Interacting]
     Active Substance: VALPROATE SODIUM
     Indication: Epilepsy
     Dosage: 1.2 GRAM, QD
     Route: 065
  5. VALPROATE SODIUM [Interacting]
     Active Substance: VALPROATE SODIUM
     Dosage: 1.6 GRAM, QD
     Route: 065
  6. CEFTRIAXONE [Concomitant]
     Active Substance: CEFTRIAXONE
     Indication: Anti-infective therapy
     Dosage: UNK
     Route: 065

REACTIONS (6)
  - Drug-induced liver injury [Fatal]
  - Thrombotic microangiopathy [Unknown]
  - Coma [Unknown]
  - Vomiting [Unknown]
  - Brain oedema [Unknown]
  - Headache [Unknown]
